FAERS Safety Report 20181891 (Version 1)
Quarter: 2021Q4

REPORT INFORMATION
  Report Type: Report from Study
  Country: US (occurrence: US)
  Receive Date: 20211214
  Receipt Date: 20211214
  Transmission Date: 20220303
  Serious: Yes (Hospitalization)
  Sender: FDA-Public Use
  Company Number: US-PFIZER INC-202101707805

PATIENT
  Sex: Female
  Weight: 42.132 kg

DRUGS (36)
  1. INOTUZUMAB OZOGAMICIN [Suspect]
     Active Substance: INOTUZUMAB OZOGAMICIN
     Dosage: UNK
  2. VINCRISTINE SULFATE [Suspect]
     Active Substance: VINCRISTINE SULFATE
     Dosage: 0.4 MG/M2/DAY, CIV, DAYS 1-4 Q28 DAYS
     Route: 042
     Dates: start: 20211116, end: 20211120
  3. DOXORUBICIN HYDROCHLORIDE [Suspect]
     Active Substance: DOXORUBICIN HYDROCHLORIDE
     Dosage: 10 MG/M2/DAY, CIV, DAYS 1-4 Q28 DAYS
     Route: 042
     Dates: start: 20211116, end: 20211120
  4. ETOPOSIDE [Suspect]
     Active Substance: ETOPOSIDE
     Dosage: 50 MG/M2/DAY, CIV, DAYS 1-4 Q28 DAYS
     Route: 042
     Dates: start: 20211116, end: 20211120
  5. CYCLOPHOSPHAMIDE [Suspect]
     Active Substance: CYCLOPHOSPHAMIDE
     Dosage: 750 MG/M2, DAY 5 Q28 DAYS
     Route: 042
     Dates: start: 20211121, end: 20211121
  6. ACYCLOVIR [Concomitant]
     Active Substance: ACYCLOVIR
     Dosage: TAKE 1 TABLET BY MOUTH EVERY 12 HOURS
     Route: 048
  7. ALLOPURINOL [Concomitant]
     Active Substance: ALLOPURINOL
     Dosage: UNK
  8. CHOLECALCIFEROL [Concomitant]
     Active Substance: CHOLECALCIFEROL
     Dosage: TAKE 1 TABLET BY MOUTH 1 TIME A DAY
     Route: 048
  9. CLOTRIMAZOLE [Concomitant]
     Active Substance: CLOTRIMAZOLE
     Dosage: DISSOLVE SLOWLY 1 TROCHE (10 MG) IN MOUTH 3 TIMES A DAY
     Route: 048
  10. FLUCONAZOLE [Concomitant]
     Active Substance: FLUCONAZOLE
     Dosage: UNK
  11. HYDROCORTISONE [Concomitant]
     Active Substance: HYDROCORTISONE
     Dosage: APPLY RECTALLY 2 TIMES A DAY
     Route: 054
  12. LEVOFLOXACIN [Concomitant]
     Active Substance: LEVOFLOXACIN
     Dosage: 750 MG
     Route: 048
  13. LORATADINE [Concomitant]
     Active Substance: LORATADINE
     Dosage: TAKE 1 TABLET (10 MG) BY MOUTH DAILY
     Route: 048
  14. LORAZEPAM [Concomitant]
     Active Substance: LORAZEPAM
     Indication: Anxiety
     Dosage: TAKE 1 TABLET (0.5 MG) BY MOUTH 2 TIMES A DAY AS NEEDED
     Route: 048
  15. LORAZEPAM [Concomitant]
     Active Substance: LORAZEPAM
     Dosage: TAKE 2 TABLETS (1 MG) 1 HOUR PRIOR TO EACH LUMBAR PUNCTURE
     Route: 048
  16. LOSARTAN [Concomitant]
     Active Substance: LOSARTAN
     Dosage: TAKE 2 TABLETS (50 MG) BY MOUTH ONCE DAILY
     Route: 048
  17. MAGNESIUM [Concomitant]
     Active Substance: MAGNESIUM
     Dosage: 500 MG
     Route: 048
  18. MELATONIN [Concomitant]
     Active Substance: MELATONIN
     Indication: Sleep apnoea syndrome
     Dosage: DISSOLVE 1 TABLET ON TOP OF TONGUE AND SWALLOW AT BEDTIME AS NEEDED
     Route: 048
  19. NARCAN [Concomitant]
     Active Substance: NALOXONE HYDROCHLORIDE
     Indication: Drug abuse
     Dosage: USE 1 SPRAY IN ONE NOSTRIL
  20. OMEGA-3-ACID ETHYL ESTER [Concomitant]
     Active Substance: OMEGA-3-ACID ETHYL ESTERS
     Dosage: TAKE 2 CAPSULES (2 G) BY MOUTH 2 TIMES A DAY
     Route: 048
  21. ONDANSETRON [Concomitant]
     Active Substance: ONDANSETRON
     Indication: Nausea
     Dosage: TAKE 1 TABLET BY MOUTH EVERY 8 HOURS AS NEEDED
     Route: 048
  22. ONDANSETRON [Concomitant]
     Active Substance: ONDANSETRON
     Indication: Vomiting
  23. OXYCODONE [Concomitant]
     Active Substance: OXYCODONE
     Indication: Pain
     Dosage: TAKE 1 TABLET (5 MG) BY MOUTH EVERY 6 HOURS AS NEEDED
     Route: 048
  24. POTASSIUM CHLORIDE [Concomitant]
     Active Substance: POTASSIUM CHLORIDE
     Dosage: DISSOLVE IN 4-8 OUNCE WATER
     Route: 048
  25. DOCUSATE\SENNOSIDES [Concomitant]
     Active Substance: DOCUSATE\SENNOSIDES
     Dosage: TAKE 1 TABLET BY MOUTH
     Route: 048
  26. SULFAMETHOXAZOLE\TRIMETHOPRIM [Concomitant]
     Active Substance: SULFAMETHOXAZOLE\TRIMETHOPRIM
     Dosage: TAKE 1 TABLET BY MOUTH 2 TIMES A DAY ON MONDAY AND TUESDAY
     Route: 048
  27. URSODIOL [Concomitant]
     Active Substance: URSODIOL
     Dosage: TAKE 300 MG BY MOUTH 2 TIMES A DAY WITH MEALS
     Route: 048
  28. AMLODIPINE [Concomitant]
     Active Substance: AMLODIPINE BESYLATE
     Dosage: 0.5 MG
     Route: 048
  29. DOCUSATE SODIUM [Concomitant]
     Active Substance: DOCUSATE SODIUM
     Dosage: 100 MG
     Route: 048
  30. MINERALS\VITAMINS [Concomitant]
     Active Substance: MINERALS\VITAMINS
     Dosage: TAKE 1 TABLET BY MOUTH 1 TIME A DAY
     Route: 048
  31. PHENYLEPHRINE/SHARK-LIVER OIL [Concomitant]
     Dosage: .25-3-14-71.9 % OINTMENT, APPLY RECTALLY 4 TIMES A DAY AS NEEDED
  32. POLYETHYLENE GLYCOL 3350 [Concomitant]
     Active Substance: POLYETHYLENE GLYCOL 3350
     Dosage: 17 GM/SCOOP ORAL POWDER, TAKE 17 G BY MOUTH
     Route: 048
  33. PROCHLORPERAZINE [Concomitant]
     Active Substance: PROCHLORPERAZINE
     Indication: Nausea
     Dosage: TAKE 1 TABLET BY MOUTH EVERY 6 HOURS AS NEEDED
  34. PROCHLORPERAZINE [Concomitant]
     Active Substance: PROCHLORPERAZINE
     Indication: Vomiting
  35. SENNATAB [Concomitant]
     Dosage: TAKE 2 TABLETS (17.2 MG) BY MOUTH 2 TIMES A DAY
  36. SIMETHICONE (DIMETHICONE) [Concomitant]
     Active Substance: DIMETHICONE
     Indication: Flatulence
     Dosage: CHEW AND SWALLOW 2 TABLETS (160 MG) BY MOUTH 3 TIMES A DAY AS NEEDED
     Route: 048

REACTIONS (1)
  - Febrile neutropenia [Unknown]

NARRATIVE: CASE EVENT DATE: 20211130
